FAERS Safety Report 19048453 (Version 1)
Quarter: 2021Q1

REPORT INFORMATION
  Report Type: Spontaneous
  Country: CA (occurrence: CA)
  Receive Date: 20210323
  Receipt Date: 20210323
  Transmission Date: 20210420
  Serious: Yes (Hospitalization)
  Sender: FDA-Public Use
  Company Number: CA-JNJFOC-20210333067

PATIENT
  Age: 78 Year
  Sex: Male
  Weight: 75 kg

DRUGS (10)
  1. ADVAIR HFA [Concomitant]
     Active Substance: FLUTICASONE PROPIONATE\SALMETEROL XINAFOATE
     Route: 065
  2. FIRMAGON [Concomitant]
     Active Substance: DEGARELIX ACETATE
     Route: 058
  3. BIMATOPROST. [Concomitant]
     Active Substance: BIMATOPROST
     Route: 065
  4. BRIMONIDINE [Concomitant]
     Active Substance: BRIMONIDINE TARTRATE
     Route: 061
  5. DUTASTERIDE. [Concomitant]
     Active Substance: DUTASTERIDE
     Route: 048
  6. ERLEADA [Suspect]
     Active Substance: APALUTAMIDE
     Indication: PRODUCT USED FOR UNKNOWN INDICATION
     Dosage: 95.0 DAYS
     Route: 048
  7. ROSUVASTATIN. [Concomitant]
     Active Substance: ROSUVASTATIN
     Route: 058
  8. EZETIMIBE. [Concomitant]
     Active Substance: EZETIMIBE
     Route: 048
  9. VITAMIN C [Concomitant]
     Active Substance: ASCORBIC ACID
     Route: 065
  10. SALBUTAMOL [Concomitant]
     Active Substance: ALBUTEROL
     Route: 065

REACTIONS (7)
  - Eosinophil count increased [Unknown]
  - Neutrophil count increased [Unknown]
  - Skin exfoliation [Unknown]
  - Pyrexia [Unknown]
  - Dermatitis exfoliative generalised [Unknown]
  - Chills [Unknown]
  - Rash maculo-papular [Unknown]
